FAERS Safety Report 9365702 (Version 2)
Quarter: 2014Q2

REPORT INFORMATION
  Report Type: Spontaneous
  Country: US (occurrence: US)
  Receive Date: 20130625
  Receipt Date: 20140610
  Transmission Date: 20141212
  Serious: Yes (Hospitalization)
  Sender: FDA-Public Use
  Company Number: US-BAYER-2013-077713

PATIENT
  Age: 17 Year
  Sex: Female
  Weight: 66 kg

DRUGS (6)
  1. YAZ [Suspect]
     Dosage: UNK
     Dates: start: 2008, end: 2010
  2. YASMIN [Suspect]
     Dosage: UNK
     Dates: start: 2008, end: 2010
  3. OCELLA [Suspect]
     Dosage: UNK
     Dates: start: 2008, end: 2010
  4. CLARITIN [Concomitant]
  5. TRAMADOL [Concomitant]
     Dosage: UNK
     Dates: start: 20101008
  6. NITROFURANTOIN [Concomitant]
     Dosage: UNK
     Dates: start: 20100924

REACTIONS (7)
  - Cerebrovascular accident [None]
  - Abdominal pain [None]
  - Injury [None]
  - General physical health deterioration [None]
  - Anxiety [None]
  - Emotional distress [None]
  - Pain [None]
